FAERS Safety Report 16668143 (Version 1)
Quarter: 2019Q3

REPORT INFORMATION
  Report Type: Spontaneous
  Country: US (occurrence: US)
  Receive Date: 20190802
  Receipt Date: 20190802
  Transmission Date: 20191004
  Serious: Yes (Other)
  Sender: FDA-Public Use
  Company Number: None

PATIENT
  Age: 70 Year
  Sex: Male
  Weight: 76.37 kg

DRUGS (7)
  1. ATENOLOL-CHLORTHALIDONE [Concomitant]
     Active Substance: ATENOLOL\CHLORTHALIDONE
  2. ABIRATERONE. [Suspect]
     Active Substance: ABIRATERONE ACETATE
     Indication: PROSTATE CANCER
     Route: 048
     Dates: start: 20181210, end: 20190802
  3. METFORMIN [Concomitant]
     Active Substance: METFORMIN HYDROCHLORIDE
  4. TAMSULOSIN [Concomitant]
     Active Substance: TAMSULOSIN
  5. AMLODIPINE AND ATORVASTATIN [Concomitant]
     Active Substance: AMLODIPINE BESYLATE\ATORVASTATIN CALCIUM
  6. ATORVASTATIN [Concomitant]
     Active Substance: ATORVASTATIN
  7. POTASSIUM CL ER [Concomitant]
     Active Substance: POTASSIUM CHLORIDE

REACTIONS (3)
  - Fatigue [None]
  - Blood potassium decreased [None]
  - Asthenia [None]

NARRATIVE: CASE EVENT DATE: 20190802
